FAERS Safety Report 9689942 (Version 2)
Quarter: 2013Q4

REPORT INFORMATION
  Report Type: Spontaneous
  Country: US (occurrence: US)
  Receive Date: 20131115
  Receipt Date: 20131209
  Transmission Date: 20140711
  Serious: No
  Sender: FDA-Public Use
  Company Number: US-PFIZER INC-2013325279

PATIENT
  Age: 34 Year
  Sex: Female
  Weight: 58.96 kg

DRUGS (2)
  1. LYRICA [Suspect]
     Indication: FIBROMYALGIA
     Dosage: UNK, AS NEEDED
     Dates: start: 201301, end: 201306
  2. LYRICA [Suspect]
     Dosage: UNK, AS NEEDED
     Dates: start: 201309, end: 201311

REACTIONS (1)
  - Arthralgia [Unknown]
